FAERS Safety Report 6857316-9 (Version None)
Quarter: 2010Q3

REPORT INFORMATION
  Report Type: 
  Country: None (occurrence: None)
  Receive Date: 20100719
  Receipt Date: 20100707
  Transmission Date: 20110219
  Serious: Yes (Other)
  Sender: FDA-Public Use
  Company Number: US-PFIZER INC-2010085540

PATIENT
  Sex: Male
  Weight: 81.633 kg

DRUGS (1)
  1. VIAGRA [Suspect]
     Indication: ERECTILE DYSFUNCTION
     Dosage: 100 MG, AS NEEDED
     Route: 048
     Dates: start: 20100703, end: 20100701

REACTIONS (4)
  - DEAFNESS [None]
  - DIZZINESS [None]
  - RESTLESSNESS [None]
  - TINNITUS [None]
